FAERS Safety Report 11097917 (Version 1)
Quarter: 2015Q2

REPORT INFORMATION
  Report Type: Spontaneous
  Country: BR (occurrence: BR)
  Receive Date: 20150507
  Receipt Date: 20150507
  Transmission Date: 20150821
  Serious: Yes (Hospitalization, Other)
  Sender: FDA-Public Use
  Company Number: BR-ELI_LILLY_AND_COMPANY-BR201504010061

PATIENT
  Sex: Male
  Weight: 70 kg

DRUGS (3)
  1. CIALIS [Suspect]
     Active Substance: TADALAFIL
     Indication: ERECTILE DYSFUNCTION
     Dosage: 5 MG, QD
     Route: 048
  2. MALEATO DE TIMOLOL [Concomitant]
     Dosage: 1 DF, BID
     Route: 047
  3. XALATAN [Concomitant]
     Active Substance: LATANOPROST
     Dosage: 1 DF, EACH EVENING
     Route: 047

REACTIONS (2)
  - Varicose vein [Recovered/Resolved]
  - Arterial occlusive disease [Recovered/Resolved]
